FAERS Safety Report 8012355-X (Version None)
Quarter: 2011Q4

REPORT INFORMATION
  Report Type: 
  Country: None (occurrence: None)
  Receive Date: 20111228
  Receipt Date: 20111223
  Transmission Date: 20120403
  Serious: Yes (Other)
  Sender: FDA-Public Use
  Company Number: US-AMGEN-USASP2011066893

PATIENT

DRUGS (2)
  1. FINASTERIDE [Concomitant]
     Indication: PROSTATOMEGALY
  2. NPLATE [Suspect]
     Indication: IDIOPATHIC THROMBOCYTOPENIC PURPURA
     Dosage: UNK
     Dates: start: 20110307

REACTIONS (5)
  - BONE DISORDER [None]
  - PLATELET COUNT DECREASED [None]
  - SWELLING [None]
  - PROCEDURAL PAIN [None]
  - HAEMORRHAGE [None]
